FAERS Safety Report 6748662-8 (Version None)
Quarter: 2010Q2

REPORT INFORMATION
  Report Type: 
  Country: None (occurrence: None)
  Receive Date: 20100601
  Receipt Date: 20100527
  Transmission Date: 20101027
  Serious: Yes (Life-Threatening, Other)
  Sender: FDA-Public Use
  Company Number: JP-JNJFOC-20100505538

PATIENT
  Age: 68 Year
  Sex: Male
  Weight: 37 kg

DRUGS (15)
  1. ITRIZOLE [Suspect]
     Indication: ASPERGILLOSIS
     Route: 048
  2. ITRIZOLE [Suspect]
     Indication: BRONCHOPULMONARY ASPERGILLOSIS
     Route: 042
  3. FUROSEMIDE [Concomitant]
     Route: 065
  4. NOREPINEPHRINE [Concomitant]
     Route: 065
  5. DOBUTAMINE HYDROCHLORIDE [Concomitant]
     Route: 065
  6. SOLU-MEDROL [Concomitant]
     Route: 042
  7. MEROPENEM [Concomitant]
     Route: 065
  8. PAZUCROSS [Concomitant]
     Route: 065
  9. GAMIMUNE N 5% [Concomitant]
     Route: 065
  10. FULCALIQ 3 [Concomitant]
     Route: 065
  11. MINERALIN [Concomitant]
     Route: 065
  12. POTASSIUM CHLORIDE [Concomitant]
     Route: 065
  13. ELASPOL [Concomitant]
     Route: 065
  14. FENTANYL [Concomitant]
     Route: 065
  15. KAKODIN [Concomitant]
     Route: 065

REACTIONS (5)
  - BLOOD PRESSURE DECREASED [None]
  - CARDIAC FAILURE CONGESTIVE [None]
  - CARDIOGENIC SHOCK [None]
  - GENERAL PHYSICAL HEALTH DETERIORATION [None]
  - RENAL FAILURE ACUTE [None]
